FAERS Safety Report 8211054-9 (Version None)
Quarter: 2012Q1

REPORT INFORMATION
  Report Type: 
  Country: None (occurrence: None)
  Receive Date: 20120315
  Receipt Date: 20120312
  Transmission Date: 20120608
  Serious: Yes (Other)
  Sender: FDA-Public Use
  Company Number: PHHY2012IE016309

PATIENT
  Age: 28 Year
  Sex: Male

DRUGS (1)
  1. LAMISIL [Suspect]
     Indication: FUNGAL INFECTION
     Dosage: 250 MG, UNK
     Route: 048
     Dates: start: 20120107, end: 20120125

REACTIONS (7)
  - MYALGIA [None]
  - MEDIAL TIBIAL STRESS SYNDROME [None]
  - FLANK PAIN [None]
  - ARTHRALGIA [None]
  - LIVER FUNCTION TEST ABNORMAL [None]
  - HEPATIC FUNCTION ABNORMAL [None]
  - MOBILITY DECREASED [None]
